FAERS Safety Report 12851587 (Version 1)
Quarter: 2016Q4

REPORT INFORMATION
  Report Type: Spontaneous
  Country: US (occurrence: US)
  Receive Date: 20161014
  Receipt Date: 20161014
  Transmission Date: 20170207
  Serious: No
  Sender: FDA-Public Use
  Company Number: None

PATIENT
  Age: 68 Year
  Sex: Male
  Weight: 72.9 kg

DRUGS (2)
  1. VITAMINS [Concomitant]
     Active Substance: VITAMINS
  2. QUAD 4: PAPAVERINE, PHENTOLAMINE MESYLATE, PROSTAGLANDIN E1, ATROPINE SULFATE [Suspect]
     Active Substance: ALPROSTADIL\ATROPINE\PAPAVERINE\PHENTOLAMINE
     Indication: ERECTILE DYSFUNCTION
     Dosage: ?          QUANTITY:50 INJECTION(S);?
     Route: 058
     Dates: start: 20160815, end: 20161011

REACTIONS (1)
  - Penile pain [None]

NARRATIVE: CASE EVENT DATE: 20160926
